FAERS Safety Report 19454709 (Version 1)
Quarter: 2021Q2

REPORT INFORMATION
  Report Type: Report from Study
  Country: US (occurrence: US)
  Receive Date: 20210623
  Receipt Date: 20210623
  Transmission Date: 20210717
  Serious: Yes (Other)
  Sender: FDA-Public Use
  Company Number: US-TAKEDA-2021TUS038740

PATIENT
  Sex: Male
  Weight: 81.63 kg

DRUGS (21)
  1. HUMAN NORMAL IMMUNOGLOBULIN; LIQUID [Suspect]
     Active Substance: HUMAN IMMUNOGLOBULIN G
     Indication: IMMUNE SYSTEM DISORDER
     Dosage: 8 GRAM, 1/WEEK
     Route: 058
     Dates: start: 20170123
  2. HUMAN NORMAL IMMUNOGLOBULIN; LIQUID [Suspect]
     Active Substance: HUMAN IMMUNOGLOBULIN G
     Indication: SELECTIVE IGG SUBCLASS DEFICIENCY
  3. DIPHENHYDRAMINE. [Concomitant]
     Active Substance: DIPHENHYDRAMINE
  4. SINGULAIR [Concomitant]
     Active Substance: MONTELUKAST SODIUM
  5. LIDOCAINE. [Concomitant]
     Active Substance: LIDOCAINE
  6. SIMVASTATIN. [Concomitant]
     Active Substance: SIMVASTATIN
  7. PREDNISONE. [Concomitant]
     Active Substance: PREDNISONE
  8. MUCINEX [Concomitant]
     Active Substance: GUAIFENESIN
  9. AUGMENTIN [Concomitant]
     Active Substance: AMOXICILLIN\CLAVULANATE POTASSIUM
  10. PRESERVISION [Concomitant]
     Active Substance: MINERALS\VITAMINS
  11. DALIRESP [Concomitant]
     Active Substance: ROFLUMILAST
  12. SPIRIVA [Concomitant]
     Active Substance: TIOTROPIUM BROMIDE MONOHYDRATE
  13. VALSARTAN. [Concomitant]
     Active Substance: VALSARTAN
  14. ACETAMINOPHEN. [Concomitant]
     Active Substance: ACETAMINOPHEN
  15. EPINEPHRINE. [Concomitant]
     Active Substance: EPINEPHRINE
  16. LEVAQUIN [Concomitant]
     Active Substance: LEVOFLOXACIN
  17. NORVASC [Concomitant]
     Active Substance: AMLODIPINE BESYLATE
  18. OXYGEN. [Concomitant]
     Active Substance: OXYGEN
  19. COENZYME Q10 [Concomitant]
     Active Substance: DIETARY SUPPLEMENT\UBIDECARENONE
  20. SYMBICORT [Concomitant]
     Active Substance: BUDESONIDE\FORMOTEROL FUMARATE DIHYDRATE
  21. CENTRUM [Concomitant]
     Active Substance: VITAMINS

REACTIONS (1)
  - Prostate cancer [Unknown]
